FAERS Safety Report 25641720 (Version 2)
Quarter: 2025Q4

REPORT INFORMATION
  Report Type: Spontaneous
  Country: US (occurrence: US)
  Receive Date: 20250804
  Receipt Date: 20251002
  Transmission Date: 20260118
  Serious: Yes (Death, Hospitalization)
  Sender: ELI LILLY AND COMPANY
  Company Number: US-ELI_LILLY_AND_COMPANY-US202507030444

PATIENT
  Age: 75 Year
  Sex: Female

DRUGS (7)
  1. ADCIRCA [Suspect]
     Active Substance: TADALAFIL
     Indication: Pulmonary arterial hypertension
     Dosage: 40 MG, DAILY
     Route: 048
     Dates: start: 202112
  2. TREPROSTINIL SODIUM [Suspect]
     Active Substance: TREPROSTINIL SODIUM
     Indication: Product used for unknown indication
     Dosage: UNK, UNKNOWN
     Route: 065
  3. WINREVAIR [Concomitant]
     Active Substance: SOTATERCEPT-CSRK
     Indication: Product used for unknown indication
     Dosage: UNK, UNKNOWN
     Route: 065
     Dates: start: 202503
  4. RITUXIMAB [Concomitant]
     Active Substance: RITUXIMAB
     Indication: Scleroderma overlap syndrome
     Dosage: UNK, UNKNOWN
     Route: 065
  5. BELIMUMAB [Concomitant]
     Active Substance: BELIMUMAB
     Indication: Scleroderma overlap syndrome
     Dosage: UNK UNK, UNKNOWN
     Route: 065
  6. ETANERCEPT [Concomitant]
     Active Substance: ETANERCEPT
     Indication: Scleroderma overlap syndrome
     Dosage: UNK, UNKNOWN
     Route: 065
  7. HYDROXYCHLOROQUINE [Concomitant]
     Active Substance: HYDROXYCHLOROQUINE
     Indication: Scleroderma overlap syndrome
     Dosage: UNK, UNKNOWN
     Route: 065

REACTIONS (6)
  - Pulmonary hypertension [Fatal]
  - Right ventricular failure [Fatal]
  - Tachycardia [Unknown]
  - Hypoxia [Unknown]
  - Hypotension [Unknown]
  - Connective tissue disorder [Unknown]
